FAERS Safety Report 7753523-1 (Version None)
Quarter: 2011Q3

REPORT INFORMATION
  Report Type: 
  Country: None (occurrence: None)
  Receive Date: 20110915
  Receipt Date: 20110907
  Transmission Date: 20111222
  Serious: Yes (Hospitalization)
  Sender: FDA-Public Use
  Company Number: US-AMGEN-USASP2011032946

PATIENT
  Age: 55 Year
  Sex: Female

DRUGS (2)
  1. ENBREL [Suspect]
     Dosage: 50 MG, QWK
     Dates: start: 20100415
  2. ENBREL [Suspect]
     Indication: RHEUMATOID ARTHRITIS
     Dosage: 50 MG, QWK
     Dates: start: 20100422

REACTIONS (13)
  - INJECTION SITE MASS [None]
  - INJECTION SITE HAEMORRHAGE [None]
  - INJECTION SITE SWELLING [None]
  - CHRONIC OBSTRUCTIVE PULMONARY DISEASE [None]
  - PAIN [None]
  - THERAPEUTIC RESPONSE DECREASED [None]
  - FOOT DEFORMITY [None]
  - INJECTION SITE PAIN [None]
  - INJECTION SITE WARMTH [None]
  - INFLUENZA [None]
  - ARTHRALGIA [None]
  - INJECTION SITE HAEMATOMA [None]
  - INJECTION SITE REACTION [None]
